FAERS Safety Report 12844917 (Version 1)
Quarter: 2016Q4

REPORT INFORMATION
  Report Type: Spontaneous
  Country: US (occurrence: US)
  Receive Date: 20161013
  Receipt Date: 20161013
  Transmission Date: 20170207
  Serious: Yes (Life-Threatening, Hospitalization)
  Sender: FDA-Public Use
  Company Number: US-BAUSCH-BL-2016-017164

PATIENT
  Age: 52 Year
  Sex: Male
  Weight: 145 kg

DRUGS (11)
  1. IRON [Concomitant]
     Active Substance: IRON
     Indication: NEPHROGENIC ANAEMIA
  2. ALPRAZOLAM. [Suspect]
     Active Substance: ALPRAZOLAM
     Indication: AGITATION
     Dosage: AS NEEDED
     Route: 048
     Dates: start: 20160207, end: 20160209
  3. HALOPERIDOL LACTATE. [Suspect]
     Active Substance: HALOPERIDOL LACTATE
     Dosage: ONCE
     Route: 042
     Dates: start: 20160210, end: 20160210
  4. TRAMADOL. [Suspect]
     Active Substance: TRAMADOL
     Indication: ARTHRALGIA
     Dosage: AS NEEDED
     Route: 048
     Dates: start: 20160208, end: 20160208
  5. EPOETIN ALFA [Suspect]
     Active Substance: ERYTHROPOIETIN
     Indication: NEPHROGENIC ANAEMIA
     Route: 042
     Dates: start: 20151218
  6. MORPHINE SULFATE. [Suspect]
     Active Substance: MORPHINE SULFATE
     Indication: ARTHRALGIA
     Dosage: AS NEEDED
     Route: 042
     Dates: start: 20160207, end: 20160209
  7. HYDROCODONE BITARTRATE AND ACETAMINOPHEN [Suspect]
     Active Substance: ACETAMINOPHEN\HYDROCODONE BITARTRATE
     Indication: ARTHRALGIA
     Dosage: 10 MG/325 MG, ONCE
     Route: 048
     Dates: start: 20160207, end: 20160207
  8. HYDROMORPHONE HYDROCHLORIDE. [Suspect]
     Active Substance: HYDROMORPHONE HYDROCHLORIDE
     Indication: ARTHRALGIA
     Dosage: AS NEEDED
     Route: 042
     Dates: start: 20160207, end: 20160210
  9. ATIVAN [Suspect]
     Active Substance: LORAZEPAM
     Indication: AGITATION
     Dosage: 2 DOSES
     Route: 042
     Dates: start: 20160210, end: 20160210
  10. EPOETIN ALFA [Suspect]
     Active Substance: ERYTHROPOIETIN
     Route: 042
     Dates: start: 20151226
  11. HALOPERIDOL LACTATE. [Suspect]
     Active Substance: HALOPERIDOL LACTATE
     Indication: AGITATION
     Dosage: ONCE
     Route: 042
     Dates: start: 20160210, end: 20160210

REACTIONS (3)
  - Osteomyelitis [Recovered/Resolved]
  - Tibia fracture [Recovered/Resolved]
  - Respiratory arrest [Recovered/Resolved]

NARRATIVE: CASE EVENT DATE: 20160207
